FAERS Safety Report 19912121 (Version 3)
Quarter: 2021Q4

REPORT INFORMATION
  Report Type: Spontaneous
  Country: CZ (occurrence: CZ)
  Receive Date: 20211004
  Receipt Date: 20211222
  Transmission Date: 20220303
  Serious: Yes (Hospitalization)
  Sender: FDA-Public Use
  Company Number: CZ-MYLANLABS-2021M1067346

PATIENT
  Age: 39 Year
  Sex: Male

DRUGS (12)
  1. SUMATRIPTAN [Suspect]
     Active Substance: SUMATRIPTAN
     Indication: Migraine
     Dosage: 50-100 MG
     Route: 048
  2. VENLAFAXINE [Suspect]
     Active Substance: VENLAFAXINE HYDROCHLORIDE
     Indication: Migraine
     Dosage: 75 MILLIGRAM, QD (75 MILLIGRAM DAILY)
     Dates: start: 202001
  3. VENLAFAXINE [Suspect]
     Active Substance: VENLAFAXINE HYDROCHLORIDE
     Indication: Migraine prophylaxis
     Dosage: 75 MILLIGRAM, QD
     Dates: start: 202010, end: 202101
  4. SUMATRIPTAN [Suspect]
     Active Substance: SUMATRIPTAN
     Indication: Migraine
     Dosage: 6 MILLIGRAM (6 MG)
     Route: 058
  5. AMITRIPTYLINE [Suspect]
     Active Substance: AMITRIPTYLINE
     Indication: Migraine prophylaxis
     Dosage: 25 MILLIGRAM, QD
     Dates: start: 201805, end: 201808
  6. AMITRIPTYLINE [Suspect]
     Active Substance: AMITRIPTYLINE
     Dosage: 25 MILLIGRAM, QD (25 MILLIGRAM DAILY)
     Dates: start: 201808
  7. AMITRIPTYLINE [Suspect]
     Active Substance: AMITRIPTYLINE
     Dosage: 25 MILLIGRAM, QD (25 MILLIGRAM DAILY)
     Dates: start: 201812
  8. VALPROIC ACID [Suspect]
     Active Substance: VALPROIC ACID
     Indication: Migraine prophylaxis
     Dosage: 600 MILLIGRAM, QD (600 MILLIGRAM DAILY)
     Dates: start: 202005, end: 202008
  9. CINNARIZINE [Suspect]
     Active Substance: CINNARIZINE
     Indication: Migraine prophylaxis
     Dosage: 25 MILLIGRAM, QD
     Dates: start: 201803, end: 201805
  10. CINNARIZINE [Suspect]
     Active Substance: CINNARIZINE
     Dosage: 25 MILLIGRAM, QD (25 MILLIGRAM DAILY)
     Dates: start: 201805
  11. IBUPROFEN [Concomitant]
     Active Substance: IBUPROFEN
     Indication: Migraine
     Dosage: 400 MILLIGRAM (400 MG)
  12. ELETRIPTAN [Concomitant]
     Active Substance: ELETRIPTAN
     Indication: Migraine
     Dosage: 80 MILLIGRAM (80 MG)

REACTIONS (6)
  - Intentional product misuse [Unknown]
  - Detoxification [Unknown]
  - Medication overuse headache [Recovering/Resolving]
  - Drug ineffective [Unknown]
  - Migraine [Unknown]
  - Extra dose administered [Unknown]
